FAERS Safety Report 8184678-5 (Version None)
Quarter: 2012Q1

REPORT INFORMATION
  Report Type: 
  Country: None (occurrence: None)
  Receive Date: 20120305
  Receipt Date: 20120222
  Transmission Date: 20120608
  Serious: Yes (Other)
  Sender: FDA-Public Use
  Company Number: FR-TEVA-325620ISR

PATIENT
  Sex: Male

DRUGS (1)
  1. BECLOMETASONE TEVA, 250MICROG/DOSE SOLUTION FOR INHALATION IN PRESSURI [Suspect]
     Route: 055
     Dates: start: 20120101

REACTIONS (1)
  - GLOSSODYNIA [None]
